FAERS Safety Report 6092421-9 (Version None)
Quarter: 2009Q1

REPORT INFORMATION
  Report Type: 
  Country: None (occurrence: None)
  Receive Date: 20090219
  Receipt Date: 20081202
  Transmission Date: 20090719
  Serious: No
  Sender: FDA-Public Use
  Company Number: WAES 0812USA01217

PATIENT
  Age: 62 Year
  Sex: Female
  Weight: 131.9967 kg

DRUGS (16)
  1. JANUVIA [Suspect]
     Indication: TYPE 2 DIABETES MELLITUS
     Dosage: 100 MG/DAILY/PO
     Route: 048
     Dates: start: 20080821, end: 20081120
  2. JANUMET [Suspect]
     Dosage: PO
     Route: 048
     Dates: end: 20080820
  3. CELEXA [Concomitant]
  4. CLARINEX [Concomitant]
  5. DARVOCET-N 100 [Concomitant]
  6. LIDODERM [Concomitant]
  7. LODINE [Concomitant]
  8. OPTIVAR OPHTHALMIC SOLUTION [Concomitant]
  9. ZOCOR [Concomitant]
  10. ASPIRIN [Concomitant]
  11. CHONDROITIN SULFATE SODIUM (+) G [Concomitant]
  12. GABAPENTIN [Concomitant]
  13. GLIPIZIDE [Concomitant]
  14. HYDROCHLOROTHIAZIDE [Concomitant]
  15. METFORMIN HYDROCHLORIDE [Concomitant]
  16. OMEPRAZOLE [Concomitant]

REACTIONS (1)
  - BLOOD PRESSURE INCREASED [None]
